FAERS Safety Report 4702630-6 (Version None)
Quarter: 2005Q2

REPORT INFORMATION
  Report Type: 
  Country: None (occurrence: None)
  Receive Date: 20050629
  Receipt Date: 20040520
  Transmission Date: 20051028
  Serious: Yes (Other)
  Sender: FDA-Public Use
  Company Number: US-GLAXOSMITHKLINE-A0511623A

PATIENT
  Sex: Female

DRUGS (3)
  1. ZYBAN [Suspect]
     Route: 048
     Dates: end: 20040519
  2. BIRTH CONTROL [Concomitant]
  3. PEPCID [Concomitant]

REACTIONS (4)
  - ASTHENIA [None]
  - MUSCULOSKELETAL STIFFNESS [None]
  - SYNCOPE [None]
  - VERTIGO [None]
